FAERS Safety Report 10392509 (Version 1)
Quarter: 2014Q3

REPORT INFORMATION
  Report Type: Spontaneous
  Country: US (occurrence: None)
  Receive Date: 20140815
  Receipt Date: 20140815
  Transmission Date: 20150326
  Serious: Yes (Other)
  Sender: FDA-Public Use
  Company Number: 2014US01005

PATIENT
  Sex: Female

DRUGS (3)
  1. BEVACIZUMAB [Suspect]
     Active Substance: BEVACIZUMAB
     Indication: BREAST CANCER
     Dosage: 10MG/KG ON DAYS 1 TO 15
  2. CARBOPLATIN (CARBOPLATIN) INJECTION [Suspect]
     Active Substance: CARBOPLATIN
     Indication: BREAST CANCER
     Dosage: AREA UNDER THE CURVE EQUALS TO 2 ON DAYS 1, 8, AND 15
  3. NAB-PACLITAXEL [Suspect]
     Active Substance: PACLITAXEL
     Indication: BREAST CANCER
     Dosage: 100MG/M2 2 ON DAYS 1,8, AND 15

REACTIONS (1)
  - Febrile neutropenia [None]
